FAERS Safety Report 11596350 (Version 1)
Quarter: 2015Q4

REPORT INFORMATION
  Report Type: Spontaneous
  Country: GB (occurrence: None)
  Receive Date: 20151005
  Receipt Date: 20151005
  Transmission Date: 20160304
  Serious: Yes (Disabling)
  Sender: FDA-Public Use
  Company Number: None

PATIENT
  Age: 52 Year
  Sex: Female
  Weight: 11 kg

DRUGS (6)
  1. FEXOFENADINE [Suspect]
     Active Substance: FEXOFENADINE\FEXOFENADINE HYDROCHLORIDE
     Indication: RASH
     Dates: start: 20151004, end: 20151004
  2. BUSCOPAN IN [Concomitant]
  3. FEXOFENADINE [Suspect]
     Active Substance: FEXOFENADINE\FEXOFENADINE HYDROCHLORIDE
     Indication: HYPERSENSITIVITY
     Dates: start: 20151004, end: 20151004
  4. PAIN KILLERS [Concomitant]
     Active Substance: UNSPECIFIED INGREDIENT
  5. TEMAZAPAM [Concomitant]
  6. AMATRIPTOLINE [Concomitant]

REACTIONS (6)
  - Paraesthesia oral [None]
  - Headache [None]
  - Pain in extremity [None]
  - Arthralgia [None]
  - Gait disturbance [None]
  - Dizziness [None]

NARRATIVE: CASE EVENT DATE: 20151004
